FAERS Safety Report 4864826-2 (Version None)
Quarter: 2005Q4

REPORT INFORMATION
  Report Type: 
  Country: None (occurrence: None)
  Receive Date: 20051201
  Receipt Date: 20050711
  Transmission Date: 20060501
  Serious: No
  Sender: FDA-Public Use
  Company Number: 2005PV000285

PATIENT
  Age: 51 Year
  Sex: Female
  Weight: 72.1219 kg

DRUGS (7)
  1. BYETTA [Suspect]
     Indication: DIABETES MELLITUS NON-INSULIN-DEPENDENT
     Dosage: 10 MCG; BID; SC ; 5 MCG; BID; SC
     Route: 058
     Dates: end: 20050601
  2. BYETTA [Suspect]
     Indication: DIABETES MELLITUS NON-INSULIN-DEPENDENT
     Dosage: 10 MCG; BID; SC ; 5 MCG; BID; SC
     Route: 058
     Dates: start: 20050601
  3. AVANDIA [Concomitant]
  4. METFORMIN HCL [Concomitant]
  5. LIPITOR [Concomitant]
  6. PRANDIN [Concomitant]
  7. MONOPRIL [Concomitant]

REACTIONS (2)
  - BLOOD GLUCOSE DECREASED [None]
  - BLOOD GLUCOSE INCREASED [None]
